FAERS Safety Report 4871887-3 (Version None)
Quarter: 2006Q1

REPORT INFORMATION
  Report Type: 
  Country: None (occurrence: None)
  Receive Date: 20060104
  Receipt Date: 20051005
  Transmission Date: 20060701
  Serious: Yes (Death, Hospitalization, Other)
  Sender: FDA-Public Use
  Company Number: US-MERCK-0510USA05385

PATIENT
  Age: 80 Year
  Sex: Male
  Weight: 82 kg

DRUGS (17)
  1. VIOXX [Suspect]
     Indication: ARTHRITIS
     Route: 048
     Dates: start: 20020213, end: 20030315
  2. COUMADIN [Concomitant]
     Indication: CORONARY ARTERY DISEASE
     Route: 065
  3. COUMADIN [Concomitant]
     Indication: CARDIAC VALVE DISEASE
     Route: 065
  4. PERCOCET [Concomitant]
     Indication: SHOULDER PAIN
     Route: 065
  5. PRINIVIL [Concomitant]
     Route: 065
  6. LASIX [Concomitant]
     Route: 065
  7. ZOCOR [Concomitant]
     Route: 065
  8. FOLIC ACID [Concomitant]
     Route: 065
  9. LANOXIN [Concomitant]
     Route: 065
  10. TYLENOL [Concomitant]
     Route: 065
  11. FERROUS SULFATE [Concomitant]
     Route: 065
  12. ASPIRIN [Concomitant]
     Route: 065
  13. ASCORBIC ACID [Concomitant]
     Route: 065
  14. VITAMIN E [Concomitant]
     Route: 065
  15. MAGNESIUM (UNSPECIFIED) [Concomitant]
     Route: 065
  16. CALCIUM (UNSPECIFIED) [Concomitant]
     Route: 065
  17. CELEBREX [Concomitant]
     Route: 065

REACTIONS (14)
  - ANAEMIA [None]
  - ANXIETY [None]
  - CARDIAC FAILURE CONGESTIVE [None]
  - CARDIOMEGALY [None]
  - DEPRESSION [None]
  - DYSPNOEA [None]
  - KNEE ARTHROPLASTY [None]
  - LUNG DISORDER [None]
  - MYOCARDIAL INFARCTION [None]
  - OSTEOARTHRITIS [None]
  - PNEUMONIA [None]
  - PULMONARY FIBROSIS [None]
  - PULMONARY OEDEMA [None]
  - RENAL FAILURE [None]
